FAERS Safety Report 17489011 (Version 1)
Quarter: 2020Q1

REPORT INFORMATION
  Report Type: Spontaneous
  Country: US (occurrence: US)
  Receive Date: 20200303
  Receipt Date: 20200303
  Transmission Date: 20200409
  Serious: No
  Sender: FDA-Public Use
  Company Number: US-PERRIGO-20US000410

PATIENT
  Age: 70 Year
  Sex: Female
  Weight: 70.3 kg

DRUGS (8)
  1. NYSTATIN AND TRIAMCINOLONE ACETONIDE [Suspect]
     Active Substance: NYSTATIN\TRIAMCINOLONE ACETONIDE
     Indication: DRY SKIN
     Dosage: UNKNOWN, SINGLE
     Route: 001
     Dates: start: 20191231, end: 20191231
  2. PROAIR HFA [Concomitant]
     Active Substance: ALBUTEROL SULFATE
     Indication: ASTHMA
     Dosage: UNK
     Route: 065
  3. NYSTATIN AND TRIAMCINOLONE ACETONIDE [Suspect]
     Active Substance: NYSTATIN\TRIAMCINOLONE ACETONIDE
     Indication: FUNGAL INFECTION
     Dosage: 1 APPLICATION, 2 TO 3 TIMES DAILY, PRN
     Route: 061
     Dates: start: 20191020, end: 20200107
  4. EPIPEN [Concomitant]
     Active Substance: EPINEPHRINE
     Indication: HYPERSENSITIVITY
     Dosage: UNK
     Route: 065
  5. LABETALOL [Concomitant]
     Active Substance: LABETALOL\LABETALOL HYDROCHLORIDE
     Indication: HYPERTENSION
     Dosage: 200 MG, TID
     Route: 065
     Dates: start: 2017
  6. PRAZOSIN. [Concomitant]
     Active Substance: PRAZOSIN
     Indication: HYPERTENSION
     Dosage: 1 MG, QID
     Route: 065
     Dates: start: 2019
  7. DOXYCYCLINE. [Concomitant]
     Active Substance: DOXYCYCLINE
     Indication: CYSTITIS
     Dosage: UNK
     Route: 065
     Dates: start: 201912, end: 201912
  8. LEVOTHYROXINE. [Concomitant]
     Active Substance: LEVOTHYROXINE
     Indication: AUTOIMMUNE THYROIDITIS
     Dosage: 0.025 MG
     Route: 065

REACTIONS (10)
  - Inappropriate schedule of product administration [Recovered/Resolved]
  - Condition aggravated [Recovering/Resolving]
  - Hypoacusis [Not Recovered/Not Resolved]
  - Product dose omission [Recovered/Resolved]
  - Middle ear effusion [Not Recovered/Not Resolved]
  - Application site pain [Not Recovered/Not Resolved]
  - Incorrect route of product administration [Recovered/Resolved]
  - Off label use [Recovered/Resolved]
  - Application site irritation [Not Recovered/Not Resolved]
  - Oropharyngeal pain [Not Recovered/Not Resolved]

NARRATIVE: CASE EVENT DATE: 201910
